FAERS Safety Report 14950626 (Version 1)
Quarter: 2018Q2

REPORT INFORMATION
  Report Type: Report from Study
  Country: US (occurrence: US)
  Receive Date: 20180530
  Receipt Date: 20180530
  Transmission Date: 20180711
  Serious: Yes (Hospitalization)
  Sender: FDA-Public Use
  Company Number: US-ROCHE-2121926

PATIENT
  Sex: Female

DRUGS (4)
  1. IMBRUVICA [Concomitant]
     Active Substance: IBRUTINIB
  2. IDELALISIB [Concomitant]
     Active Substance: IDELALISIB
  3. RITUXAN [Suspect]
     Active Substance: RITUXIMAB
     Indication: CHRONIC LYMPHOCYTIC LEUKAEMIA
     Route: 065
     Dates: start: 20160809
  4. GAZYVA [Suspect]
     Active Substance: OBINUTUZUMAB
     Indication: PRODUCT USED FOR UNKNOWN INDICATION
     Route: 065
     Dates: start: 20161214, end: 20170207

REACTIONS (14)
  - Cellulitis [Unknown]
  - Blood creatinine increased [Unknown]
  - Rash [Unknown]
  - Drug intolerance [Unknown]
  - Toxicity to various agents [Unknown]
  - Abdominal pain [Unknown]
  - Drug ineffective [Unknown]
  - Diarrhoea [Unknown]
  - Nausea [Unknown]
  - Female genital tract fistula [Unknown]
  - Sepsis [Unknown]
  - Rectal adenoma [Unknown]
  - Vomiting [Unknown]
  - Lymphadenopathy [Unknown]
